FAERS Safety Report 6250458-0 (Version None)
Quarter: 2009Q2

REPORT INFORMATION
  Report Type: 
  Country: None (occurrence: None)
  Receive Date: 20090630
  Receipt Date: 20090624
  Transmission Date: 20091009
  Serious: Yes (Other)
  Sender: FDA-Public Use
  Company Number: US-BAYER-200922627NA

PATIENT
  Sex: Female

DRUGS (5)
  1. CLIMARA PRO [Suspect]
     Indication: HORMONE REPLACEMENT THERAPY
     Route: 062
  2. ESTRATEST [Suspect]
     Indication: HORMONE REPLACEMENT THERAPY
  3. PROVERA [Suspect]
     Indication: HORMONE REPLACEMENT THERAPY
  4. COMBIPATCH [Suspect]
     Indication: HORMONE REPLACEMENT THERAPY
  5. ESTRADIOL W/MEDROXYPROGESTERONE [Suspect]

REACTIONS (1)
  - BREAST CANCER [None]
